FAERS Safety Report 25074756 (Version 2)
Quarter: 2025Q1

REPORT INFORMATION
  Report Type: Spontaneous
  Country: US (occurrence: US)
  Receive Date: 20250313
  Receipt Date: 20250314
  Transmission Date: 20250409
  Serious: No
  Sender: ELI LILLY AND COMPANY
  Company Number: US-ELI_LILLY_AND_COMPANY-US202503009233

PATIENT
  Age: 53 Year
  Sex: Female

DRUGS (2)
  1. TADALAFIL [Suspect]
     Active Substance: TADALAFIL
     Indication: Product used for unknown indication
     Route: 065
     Dates: end: 20250220
  2. REMODULIN [Suspect]
     Active Substance: TREPROSTINIL
     Indication: Pulmonary arterial hypertension
     Route: 042
     Dates: start: 202411

REACTIONS (6)
  - Visual impairment [Recovering/Resolving]
  - Affective disorder [Unknown]
  - Respiration abnormal [Unknown]
  - Weight increased [Unknown]
  - Palpitations [Unknown]
  - Dizziness [Unknown]
